FAERS Safety Report 7037021-9 (Version None)
Quarter: 2010Q4

REPORT INFORMATION
  Report Type: 
  Country: None (occurrence: None)
  Receive Date: 20101011
  Receipt Date: 20101005
  Transmission Date: 20110411
  Serious: Yes (Other)
  Sender: FDA-Public Use
  Company Number: US-JNJCH-2010022822

PATIENT
  Age: 54 Year
  Sex: Female
  Weight: 49.9 kg

DRUGS (1)
  1. VISINE EYE DROPS [Suspect]
     Indication: OCULAR HYPERAEMIA
     Dosage: TEXT:FEW DROPS IN EACH EYE ONCE PER DAY
     Route: 047
     Dates: start: 20100311, end: 20100311

REACTIONS (1)
  - EYE DISORDER [None]
